FAERS Safety Report 8389932-X (Version None)
Quarter: 2012Q2

REPORT INFORMATION
  Report Type: 
  Country: None (occurrence: None)
  Receive Date: 20120529
  Receipt Date: 20120517
  Transmission Date: 20120825
  Serious: Yes (Other)
  Sender: FDA-Public Use
  Company Number: US-SANOFI-AVENTIS-2012SA023869

PATIENT
  Age: 88 Year
  Sex: Female

DRUGS (2)
  1. LANTUS [Suspect]
     Route: 058
     Dates: start: 20120201
  2. SOLOSTAR [Suspect]
     Dates: start: 20120201

REACTIONS (6)
  - NEUROPATHY PERIPHERAL [None]
  - VISUAL IMPAIRMENT [None]
  - CONDITION AGGRAVATED [None]
  - MUSCULAR WEAKNESS [None]
  - FALL [None]
  - MALAISE [None]
